FAERS Safety Report 9797111 (Version 1)
Quarter: 2014Q1

REPORT INFORMATION
  Report Type: Spontaneous
  Country: CA (occurrence: CA)
  Receive Date: 20140106
  Receipt Date: 20140106
  Transmission Date: 20141002
  Serious: Yes (Other)
  Sender: FDA-Public Use
  Company Number: PHHY2013CA153435

PATIENT
  Age: 62 Year
  Sex: Male

DRUGS (6)
  1. IMATINIB [Suspect]
     Indication: CHRONIC MYELOID LEUKAEMIA
     Dosage: 400 MG, DAILY
  2. IMATINIB [Suspect]
     Dosage: 200 MG, DAILY
  3. NILOTINIB [Suspect]
     Indication: CHRONIC MYELOID LEUKAEMIA
     Dosage: UNK
  4. NILOTINIB [Suspect]
     Dosage: 400 MG, BID
  5. PREDNISONE [Suspect]
  6. DASATINIB [Suspect]
     Indication: CHRONIC MYELOID LEUKAEMIA

REACTIONS (3)
  - Bone marrow failure [Unknown]
  - Thrombocytopenia [Recovering/Resolving]
  - Drug ineffective [Unknown]
